APPROVED DRUG PRODUCT: BUSULFAN
Active Ingredient: BUSULFAN
Strength: 6MG/ML
Dosage Form/Route: INJECTABLE;INJECTION
Application: A208536 | Product #001 | TE Code: AP
Applicant: MYLAN INSTITUTIONAL INC
Approved: Nov 20, 2017 | RLD: No | RS: No | Type: RX